FAERS Safety Report 10028027 (Version 2)
Quarter: 2014Q2

REPORT INFORMATION
  Report Type: Spontaneous
  Country: US (occurrence: US)
  Receive Date: 20140321
  Receipt Date: 20140403
  Transmission Date: 20141212
  Serious: No
  Sender: FDA-Public Use
  Company Number: US-BAYER-2014-040132

PATIENT
  Sex: Female
  Weight: 64.85 kg

DRUGS (3)
  1. ESTRADIOL HEMIHYDRATE (PATCH) [Suspect]
     Dosage: 1 DF, QD
     Route: 062
     Dates: start: 1990
  2. MICARDIS [Concomitant]
     Indication: HYPERTENSION
     Dosage: UNK
     Route: 048
     Dates: start: 2004, end: 2005
  3. ATENOLOL [Concomitant]
     Indication: HYPERTENSION
     Dosage: 50 MG, BID
     Route: 048
     Dates: start: 2005

REACTIONS (3)
  - Phlebitis [Recovered/Resolved with Sequelae]
  - Venous pressure increased [Recovered/Resolved with Sequelae]
  - Pain in extremity [Recovered/Resolved with Sequelae]
